FAERS Safety Report 18208760 (Version 2)
Quarter: 2021Q1

REPORT INFORMATION
  Report Type: Spontaneous
  Country: US (occurrence: US)
  Receive Date: 20200828
  Receipt Date: 20210325
  Transmission Date: 20210419
  Serious: Yes (Other)
  Sender: FDA-Public Use
  Company Number: US-ASTRAZENECA-2020SF07316

PATIENT
  Age: 19810 Day
  Sex: Male
  Weight: 108.9 kg

DRUGS (38)
  1. VALACICLOVIR [Concomitant]
     Active Substance: VALACYCLOVIR HYDROCHLORIDE
  2. BENAZEPRIL [Concomitant]
     Active Substance: BENAZEPRIL HYDROCHLORIDE
  3. POTASSIUM CHLORIDE. [Concomitant]
     Active Substance: POTASSIUM CHLORIDE
  4. IBUPROFEN. [Concomitant]
     Active Substance: IBUPROFEN
  5. FOLIC ACID. [Concomitant]
     Active Substance: FOLIC ACID
  6. DICYCLOMINE [Concomitant]
     Active Substance: DICYCLOMINE HYDROCHLORIDE
  7. PRILOSEC [Suspect]
     Active Substance: OMEPRAZOLE MAGNESIUM
     Indication: GASTROOESOPHAGEAL REFLUX DISEASE
     Dosage: GENERIC
     Route: 065
  8. TAMSULOSIN [Concomitant]
     Active Substance: TAMSULOSIN
  9. SMZ/TMP [Concomitant]
     Active Substance: SULFAMETHOXAZOLE\TRIMETHOPRIM
  10. NAPROXEN. [Concomitant]
     Active Substance: NAPROXEN
  11. PRILOSEC OTC [Suspect]
     Active Substance: OMEPRAZOLE MAGNESIUM
     Indication: GASTROOESOPHAGEAL REFLUX DISEASE
     Route: 048
     Dates: start: 200801, end: 201812
  12. PRILOSEC [Suspect]
     Active Substance: OMEPRAZOLE MAGNESIUM
     Indication: GASTROOESOPHAGEAL REFLUX DISEASE
     Route: 048
     Dates: start: 2000, end: 2018
  13. HYDROCODONE BITARTRATE AND ACETAMINOPHEN [Concomitant]
     Active Substance: ACETAMINOPHEN\HYDROCODONE BITARTRATE
  14. AMLODIPINE [Concomitant]
     Active Substance: AMLODIPINE BESYLATE
  15. AZITHROMYCIN ANHYDROUS. [Concomitant]
     Active Substance: AZITHROMYCIN ANHYDROUS
  16. TRAZODONE [Concomitant]
     Active Substance: TRAZODONE HYDROCHLORIDE
  17. VITAMIN B1 [Concomitant]
     Active Substance: THIAMINE HYDROCHLORIDE
  18. LIDODERM [Concomitant]
     Active Substance: LIDOCAINE
  19. COLACE [Concomitant]
     Active Substance: DOCUSATE SODIUM
  20. METHOCARBAMOL. [Concomitant]
     Active Substance: METHOCARBAMOL
  21. MUPIROCIN. [Concomitant]
     Active Substance: MUPIROCIN
  22. ZOLPIDEM [Concomitant]
     Active Substance: ZOLPIDEM TARTRATE
  23. CIPROFLOXACIN. [Concomitant]
     Active Substance: CIPROFLOXACIN
  24. STAXYN [Concomitant]
     Active Substance: VARDENAFIL HYDROCHLORIDE
  25. PRILOSEC OTC [Suspect]
     Active Substance: OMEPRAZOLE MAGNESIUM
     Indication: GASTROOESOPHAGEAL REFLUX DISEASE
     Route: 048
     Dates: start: 2008, end: 2018
  26. LEVOTHYROXINE. [Concomitant]
     Active Substance: LEVOTHYROXINE
  27. LEVOFLOXACIN. [Concomitant]
     Active Substance: LEVOFLOXACIN
  28. OLMESARTAN [Concomitant]
     Active Substance: OLMESARTAN
  29. RISPERDAL [Concomitant]
     Active Substance: RISPERIDONE
  30. ABILIFY [Concomitant]
     Active Substance: ARIPIPRAZOLE
  31. CLINDAMYCIN. [Concomitant]
     Active Substance: CLINDAMYCIN
  32. NEXIUM [Suspect]
     Active Substance: ESOMEPRAZOLE MAGNESIUM
     Indication: GASTROOESOPHAGEAL REFLUX DISEASE
     Route: 048
     Dates: end: 2015
  33. DEXILANT [Suspect]
     Active Substance: DEXLANSOPRAZOLE
     Indication: GASTROOESOPHAGEAL REFLUX DISEASE
     Route: 065
  34. ATORVASTATIN [Concomitant]
     Active Substance: ATORVASTATIN
  35. CARISOPRODOL. [Concomitant]
     Active Substance: CARISOPRODOL
  36. SILDENAFIL. [Concomitant]
     Active Substance: SILDENAFIL
  37. HYDROCHLOROTHIAZIDE. [Concomitant]
     Active Substance: HYDROCHLOROTHIAZIDE
  38. LISINOPRIL. [Concomitant]
     Active Substance: LISINOPRIL

REACTIONS (2)
  - Chronic kidney disease [Not Recovered/Not Resolved]
  - Gastrooesophageal reflux disease [Not Recovered/Not Resolved]

NARRATIVE: CASE EVENT DATE: 20170821
